FAERS Safety Report 12528813 (Version 2)
Quarter: 2016Q3

REPORT INFORMATION
  Report Type: Spontaneous
  Country: IL (occurrence: IL)
  Receive Date: 20160705
  Receipt Date: 20160725
  Transmission Date: 20161109
  Serious: Yes (Death)
  Sender: FDA-Public Use
  Company Number: IL-JNJFOC-20160701308

PATIENT
  Age: 79 Year
  Sex: Female

DRUGS (1)
  1. IMBRUVICA [Suspect]
     Active Substance: IBRUTINIB
     Indication: CHRONIC LYMPHOCYTIC LEUKAEMIA
     Route: 048

REACTIONS (9)
  - Lung infiltration [None]
  - Lymphocytosis [None]
  - Diarrhoea [Recovered/Resolved]
  - Feeling abnormal [None]
  - Condition aggravated [None]
  - Axillary mass [None]
  - Mass [Fatal]
  - Lymphadenopathy [None]
  - Splenomegaly [None]
